FAERS Safety Report 5070129-6 (Version None)
Quarter: 2006Q3

REPORT INFORMATION
  Report Type: 
  Country: None (occurrence: None)
  Receive Date: 20060802
  Receipt Date: 20060802
  Transmission Date: 20061208
  Serious: Yes (Hospitalization)
  Sender: FDA-Public Use
  Company Number: None

PATIENT
  Age: 62 Year
  Sex: Male
  Weight: 70.9 kg

DRUGS (1)
  1. CILASTATIN/IMIPENEM [Suspect]
     Indication: PNEUMONIA
     Dosage: 500 MG IV Q 6 HRS
     Route: 042
     Dates: start: 20060418

REACTIONS (1)
  - CONVULSION [None]
